FAERS Safety Report 6634314-1 (Version None)
Quarter: 2010Q1

REPORT INFORMATION
  Report Type: 
  Country: None (occurrence: None)
  Receive Date: 20100315
  Receipt Date: 20100308
  Transmission Date: 20100710
  Serious: Yes (Other)
  Sender: FDA-Public Use
  Company Number: US-JNJCH-2010006137

PATIENT
  Age: 68 Year
  Sex: Male
  Weight: 61.2 kg

DRUGS (3)
  1. ROLAIDS TAB [Suspect]
     Indication: GASTROOESOPHAGEAL REFLUX DISEASE
     Dosage: TEXT:THREE TO FOUR TABLETS A DAY
     Route: 048
  2. TEMAZEPAM [Concomitant]
     Indication: SLEEP DISORDER
     Route: 048
  3. ANGIRGEL [Concomitant]
     Indication: BLOOD TESTOSTERONE ABNORMAL
     Dosage: TEXT:7 MG UNSPECIFIED
     Route: 065

REACTIONS (2)
  - COLITIS [None]
  - OFF LABEL USE [None]
